FAERS Safety Report 7959231 (Version 2)
Quarter: 2014Q1

REPORT INFORMATION
  Report Type: Spontaneous
  Country: US (occurrence: US)
  Receive Date: 20110525
  Receipt Date: 20140110
  Transmission Date: 20141002
  Serious: Yes (Hospitalization)
  Sender: FDA-Public Use
  Company Number: US-BAYER-2011-028217

PATIENT
  Age: 21 Year
  Sex: Female
  Weight: 83.9 kg

DRUGS (4)
  1. YAZ [Suspect]
     Indication: CONTRACEPTION
     Dosage: UNK
     Dates: start: 200612, end: 201002
  2. ATENOLOL [Concomitant]
     Indication: TACHYCARDIA
     Dosage: UNK
     Dates: start: 200812
  3. ATENOLOL [Concomitant]
     Indication: CHEST PAIN
  4. METHIMAZOLE [Concomitant]
     Indication: THYROID DISORDER
     Route: 048

REACTIONS (7)
  - Gallbladder disorder [None]
  - Cholecystitis acute [None]
  - Tachycardia [None]
  - Injury [None]
  - Pain [None]
  - Anxiety [None]
  - Anhedonia [None]
